FAERS Safety Report 23771949 (Version 1)
Quarter: 2024Q2

REPORT INFORMATION
  Report Type: Report from Study
  Country: ZA (occurrence: ZA)
  Receive Date: 20240423
  Receipt Date: 20240423
  Transmission Date: 20240716
  Serious: Yes (Hospitalization)
  Sender: FDA-Public Use
  Company Number: ZA-AstraZeneca-2024A091524

PATIENT
  Age: 177 Day
  Sex: Male

DRUGS (1)
  1. SYNAGIS [Suspect]
     Active Substance: PALIVIZUMAB
     Indication: Product used for unknown indication
     Dosage: UNKNOWN
     Route: 030
     Dates: start: 20240410

REACTIONS (2)
  - Respiratory syncytial virus infection [Unknown]
  - Infection [Unknown]

NARRATIVE: CASE EVENT DATE: 20240412
